FAERS Safety Report 16072840 (Version 3)
Quarter: 2019Q2

REPORT INFORMATION
  Report Type: Spontaneous
  Country: US (occurrence: US)
  Receive Date: 20190314
  Receipt Date: 20190513
  Transmission Date: 20190711
  Serious: No
  Sender: FDA-Public Use
  Company Number: US-HTU-2019US018509

PATIENT
  Sex: Female

DRUGS (1)
  1. VALCHLOR [Suspect]
     Active Substance: MECHLORETHAMINE
     Indication: CUTANEOUS T-CELL LYMPHOMA
     Dosage: THIN FILM, ONCE DAILY
     Route: 061
     Dates: start: 20190124

REACTIONS (5)
  - Application site pain [Unknown]
  - Scab [Unknown]
  - Skin discolouration [Unknown]
  - Application site scab [Not Recovered/Not Resolved]
  - Application site rash [Unknown]
